FAERS Safety Report 23827349 (Version 1)
Quarter: 2024Q2

REPORT INFORMATION
  Report Type: Spontaneous
  Country: CA (occurrence: CA)
  Receive Date: 20240507
  Receipt Date: 20240507
  Transmission Date: 20240716
  Serious: Yes (Death, Hospitalization, Other)
  Sender: FDA-Public Use
  Company Number: CA-BAXTER-2024BAX017746

PATIENT
  Age: 15 Year
  Sex: Female

DRUGS (2)
  1. ACETAMINOPHEN [Suspect]
     Active Substance: ACETAMINOPHEN
     Indication: Substance use
     Dosage: UNSPECIFIED DOSE AT AN UNSPECIFIED FREQUENCY, (DOSAGE FORM: NOT SPECIFIED)
     Route: 065
  2. ACETAMINOPHEN [Suspect]
     Active Substance: ACETAMINOPHEN
     Dosage: 15.0 GRAM AT AN UNSPECIFIED FREQUENCY, (DOSAGE FORM: NOT SPECIFIED)
     Route: 048

REACTIONS (12)
  - Acute hepatic failure [Fatal]
  - Brain death [Fatal]
  - Overdose [Fatal]
  - Toxicity to various agents [Fatal]
  - Abdominal discomfort [Fatal]
  - Blood creatine increased [Fatal]
  - Fluid replacement [Fatal]
  - Hepatotoxicity [Fatal]
  - Agitation [Fatal]
  - Oliguria [Fatal]
  - Headache [Fatal]
  - Nausea [Fatal]
